FAERS Safety Report 14765844 (Version 7)
Quarter: 2018Q4

REPORT INFORMATION
  Report Type: Report from Study
  Country: US (occurrence: US)
  Receive Date: 20180416
  Receipt Date: 20181105
  Transmission Date: 20190204
  Serious: Yes (Death, Hospitalization, Disabling)
  Sender: FDA-Public Use
  Company Number: US-ACTELION-A-NJ2018-170632

PATIENT
  Age: 80 Year
  Sex: Female
  Weight: 45.35 kg

DRUGS (5)
  1. OPSUMIT [Suspect]
     Active Substance: MACITENTAN
     Indication: PULMONARY ARTERIAL HYPERTENSION
     Dosage: 10 MG, QD
     Route: 048
     Dates: start: 20171218, end: 201809
  2. UPTRAVI [Suspect]
     Active Substance: SELEXIPAG
     Indication: PULMONARY ARTERIAL HYPERTENSION
     Dosage: 400 MCG, BID
     Route: 048
     Dates: end: 201809
  3. UPTRAVI [Suspect]
     Active Substance: SELEXIPAG
     Dosage: 300 MG, UNK
     Route: 048
  4. UPTRAVI [Suspect]
     Active Substance: SELEXIPAG
     Dosage: 200 MG, UNK
     Route: 048
  5. ANTICOAGULANT CITRATE DEXTROSE SOLUTION (ACD) NOS [Concomitant]
     Active Substance: CITRIC ACID MONOHYDRATE\DEXTROSE\SODIUM CITRATE

REACTIONS (13)
  - Pulmonary hypertension [Fatal]
  - Haemoglobin decreased [Recovering/Resolving]
  - Headache [Unknown]
  - Bone pain [Unknown]
  - Gastrointestinal perforation [Unknown]
  - Fluid retention [Unknown]
  - Hospice care [Recovered/Resolved]
  - Transfusion [Recovering/Resolving]
  - Anaemia [Recovering/Resolving]
  - Product dose omission [Recovered/Resolved]
  - Gastrointestinal haemorrhage [Unknown]
  - Ascites [Fatal]
  - Infection [Unknown]

NARRATIVE: CASE EVENT DATE: 20180411
